FAERS Safety Report 6344734-0 (Version None)
Quarter: 2009Q3

REPORT INFORMATION
  Report Type: 
  Country: None (occurrence: None)
  Receive Date: 20090904
  Receipt Date: 20090824
  Transmission Date: 20100115
  Serious: Yes (Other)
  Sender: FDA-Public Use
  Company Number: 230108J09USA

PATIENT
  Age: 47 Year
  Sex: Male
  Weight: 91 kg

DRUGS (3)
  1. REBIF [Suspect]
     Indication: MULTIPLE SCLEROSIS
     Dosage: 44 MCG, 3 IN 1 WEEKS, SUBCUTANEOUS
     Route: 058
     Dates: start: 20080930
  2. VITAMIN B (VITAMIN B) [Concomitant]
  3. IBUPROFEN [Concomitant]

REACTIONS (3)
  - ARTHRALGIA [None]
  - BASEDOW'S DISEASE [None]
  - PYREXIA [None]
